FAERS Safety Report 4542810-6 (Version None)
Quarter: 2004Q4

REPORT INFORMATION
  Report Type: 
  Country: None (occurrence: None)
  Receive Date: 20041229
  Receipt Date: 20041214
  Transmission Date: 20050328
  Serious: Yes (Hospitalization)
  Sender: FDA-Public Use
  Company Number: 2004-05295

PATIENT
  Age: 77 Year
  Sex: Female
  Weight: 57.6 kg

DRUGS (4)
  1. PREDNISONE [Suspect]
     Indication: GOUT
     Dosage: 20 MG, QAM, ORAL
     Route: 048
     Dates: start: 20040730, end: 20040907
  2. PREDNISONE [Suspect]
     Indication: GOUT
     Dosage: 15 MG, QAM, ORAL
     Route: 048
     Dates: start: 20040907
  3. ALLOPURINOL [Suspect]
     Indication: GOUT
     Dosage: ORAL
     Route: 048
     Dates: start: 20030201, end: 20030801
  4. ALLOPURINOL [Suspect]
     Indication: GOUT
     Dosage: ORAL
     Route: 048
     Dates: start: 20040809

REACTIONS (3)
  - CONDITION AGGRAVATED [None]
  - GOUT [None]
  - MANIA [None]
